FAERS Safety Report 15493184 (Version 1)
Quarter: 2018Q4

REPORT INFORMATION
  Report Type: Spontaneous
  Country: FR (occurrence: FR)
  Receive Date: 20181012
  Receipt Date: 20181012
  Transmission Date: 20190205
  Serious: Yes (Hospitalization)
  Sender: FDA-Public Use
  Company Number: FR-009507513-1810FRA003543

PATIENT
  Age: 45 Year
  Sex: Male
  Weight: 92 kg

DRUGS (2)
  1. CUBICIN [Suspect]
     Active Substance: DAPTOMYCIN
     Route: 042
     Dates: start: 20180807, end: 20180903
  2. AZACTAM [Suspect]
     Active Substance: AZTREONAM
     Dosage: 6 G, UNK
     Route: 042
     Dates: start: 20180807, end: 20180903

REACTIONS (1)
  - Agranulocytosis [Recovered/Resolved]

NARRATIVE: CASE EVENT DATE: 20180903
